FAERS Safety Report 10563083 (Version 1)
Quarter: 2014Q4

REPORT INFORMATION
  Report Type: Spontaneous
  Country: US (occurrence: None)
  Receive Date: 20141103
  Receipt Date: 20141103
  Transmission Date: 20150529
  Serious: Yes (Life-Threatening, Hospitalization, Disabling)
  Sender: FDA-Public Use
  Company Number: None

PATIENT
  Age: 26 Year
  Sex: Female
  Weight: 88.45 kg

DRUGS (1)
  1. AMOXICILLIN. [Suspect]
     Active Substance: AMOXICILLIN
     Indication: PHARYNGITIS STREPTOCOCCAL
     Route: 048
     Dates: start: 20140508, end: 20140523

REACTIONS (7)
  - Malaise [None]
  - Hallucination [None]
  - Mood swings [None]
  - Psychotic disorder [None]
  - Bedridden [None]
  - Schizophrenia [None]
  - Hallucination, auditory [None]

NARRATIVE: CASE EVENT DATE: 20140508
